FAERS Safety Report 6235256-6 (Version None)
Quarter: 2009Q2

REPORT INFORMATION
  Report Type: 
  Country: None (occurrence: None)
  Receive Date: 20090618
  Receipt Date: 20090608
  Transmission Date: 20091009
  Serious: Yes (Hospitalization)
  Sender: FDA-Public Use
  Company Number: US-SANOFI-SYNTHELABO-A01200906012

PATIENT
  Sex: Female
  Weight: 80 kg

DRUGS (8)
  1. ANTIDEPRESSANTS [Concomitant]
     Dosage: UNK
     Route: 065
  2. AMBIEN [Suspect]
     Indication: INSOMNIA
     Dosage: UNK
     Route: 048
  3. COPAXONE [Concomitant]
     Indication: DRUG USE FOR UNKNOWN INDICATION
     Dosage: UNK
     Route: 065
     Dates: start: 20081115
  4. COPAXONE [Concomitant]
     Dosage: UNK
     Route: 065
     Dates: start: 20090101
  5. SOLU-MEDROL [Concomitant]
     Dosage: UNK
     Route: 065
  6. BETASERON [Interacting]
     Indication: RELAPSING-REMITTING MULTIPLE SCLEROSIS
     Dosage: UNK
     Route: 058
     Dates: start: 20040802, end: 20071220
  7. BETASERON [Interacting]
     Dosage: UNK
     Route: 058
     Dates: start: 20080222, end: 20081101
  8. BETASERON [Interacting]
     Dosage: UNK
     Route: 058
     Dates: start: 20081101

REACTIONS (2)
  - DRUG INTERACTION [None]
  - LOSS OF CONSCIOUSNESS [None]
